FAERS Safety Report 6143877-4 (Version None)
Quarter: 2009Q2

REPORT INFORMATION
  Report Type: 
  Country: None (occurrence: None)
  Receive Date: 20090405
  Receipt Date: 20090313
  Transmission Date: 20091009
  Serious: Yes (Other)
  Sender: FDA-Public Use
  Company Number: US-PFIZER INC-2009182406

PATIENT

DRUGS (1)
  1. ZIPRASIDONE HCL [Suspect]

REACTIONS (2)
  - HIV TEST POSITIVE [None]
  - WHITE BLOOD CELL COUNT DECREASED [None]
